FAERS Safety Report 5053321-6 (Version None)
Quarter: 2006Q3

REPORT INFORMATION
  Report Type: 
  Country: None (occurrence: None)
  Receive Date: 20060718
  Receipt Date: 20060710
  Transmission Date: 20061208
  Serious: Yes (Hospitalization, Other)
  Sender: FDA-Public Use
  Company Number: PL-JNJFOC-20060701688

PATIENT
  Age: 30 Year
  Sex: Male
  Weight: 56 kg

DRUGS (4)
  1. REOPRO [Suspect]
     Indication: PERCUTANEOUS CORONARY INTERVENTION
  2. ACETYLSALICYLIC ACID SRT [Concomitant]
  3. UNFRACTIONATED HEPARIN [Concomitant]
  4. CLOPIDOGREL [Concomitant]

REACTIONS (3)
  - CARDIOGENIC SHOCK [None]
  - CEREBROVASCULAR ACCIDENT [None]
  - MYOCARDIAL INFARCTION [None]
